FAERS Safety Report 5460545-2 (Version None)
Quarter: 2007Q3

REPORT INFORMATION
  Report Type: 
  Country: None (occurrence: None)
  Receive Date: 20070919
  Receipt Date: 20070911
  Transmission Date: 20080115
  Serious: Yes (Other)
  Sender: FDA-Public Use
  Company Number: GB-PFIZER INC-2007075991

PATIENT
  Age: 57 Year
  Sex: Female

DRUGS (2)
  1. CHAMPIX [Suspect]
     Dosage: TEXT:0.5MG
     Route: 048
     Dates: start: 20070727, end: 20070803
  2. LIVIAL [Concomitant]
     Indication: HORMONE REPLACEMENT THERAPY
     Route: 048

REACTIONS (4)
  - EYE SWELLING [None]
  - HEADACHE [None]
  - MALAISE [None]
  - OEDEMA [None]
